FAERS Safety Report 17266099 (Version 1)
Quarter: 2020Q1

REPORT INFORMATION
  Report Type: Spontaneous
  Country: PT (occurrence: PT)
  Receive Date: 20200114
  Receipt Date: 20200114
  Transmission Date: 20200409
  Serious: Yes (Hospitalization, Other)
  Sender: FDA-Public Use
  Company Number: PT-SUN PHARMACEUTICAL INDUSTRIES LTD-2020RR-232983

PATIENT
  Age: 67 Year
  Sex: Female

DRUGS (4)
  1. SIMVASTATIN. [Interacting]
     Active Substance: SIMVASTATIN
     Indication: DYSLIPIDAEMIA
     Dosage: REINTRODUCED AND LATER SUSPENDED
     Route: 048
  2. CIPRO [Interacting]
     Active Substance: CIPROFLOXACIN HYDROCHLORIDE
     Indication: SKIN BACTERIAL INFECTION
     Dosage: IN JUNE ()
     Route: 065
     Dates: start: 201806, end: 2018
  3. SIMVASTATIN. [Interacting]
     Active Substance: SIMVASTATIN
     Dosage: UNK ()
     Route: 048
     Dates: start: 2017, end: 2018
  4. CLARITHROMYCIN. [Suspect]
     Active Substance: CLARITHROMYCIN
     Indication: SKIN BACTERIAL INFECTION
     Dosage: IN JUNE ()
     Route: 065
     Dates: start: 201806, end: 2018

REACTIONS (14)
  - Muscular weakness [Recovering/Resolving]
  - Oedema peripheral [Recovering/Resolving]
  - Myositis [Unknown]
  - Myalgia [Recovering/Resolving]
  - Rhabdomyolysis [Recovered/Resolved]
  - Nausea [Recovered/Resolved]
  - Acute kidney injury [Recovered/Resolved]
  - Mycobacterium chelonae infection [Unknown]
  - Diarrhoea [Recovered/Resolved]
  - Myopathy [Recovering/Resolving]
  - Quadriparesis [Recovering/Resolving]
  - Potentiating drug interaction [Recovered/Resolved]
  - Hepatocellular injury [Recovered/Resolved]
  - Off label use [Unknown]

NARRATIVE: CASE EVENT DATE: 2018
